FAERS Safety Report 6751524-3 (Version None)
Quarter: 2010Q2

REPORT INFORMATION
  Report Type: 
  Country: None (occurrence: None)
  Receive Date: 20100602
  Receipt Date: 20100524
  Transmission Date: 20101027
  Serious: Yes (Death, Hospitalization, Other)
  Sender: FDA-Public Use
  Company Number: PT-ROCHE-705109

PATIENT
  Age: 57 Year
  Sex: Female

DRUGS (8)
  1. TRASTUZUMAB [Suspect]
     Indication: BREAST CANCER
     Route: 065
     Dates: start: 20081001, end: 20090309
  2. DIAZEPAM [Suspect]
     Route: 065
  3. TIANEPTINE [Suspect]
     Route: 065
  4. ESTAZOLAM [Suspect]
     Route: 065
  5. TAMOXIFEN CITRATE [Concomitant]
     Dates: start: 20080901
  6. DOCETAXEL [Concomitant]
  7. DOXORUBICIN HCL [Concomitant]
  8. CYCLOPHOSPHAMIDE [Concomitant]

REACTIONS (4)
  - ARRHYTHMIA [None]
  - DEPRESSION [None]
  - EJECTION FRACTION DECREASED [None]
  - LEFT ATRIAL DILATATION [None]
